FAERS Safety Report 9862571 (Version 1)
Quarter: 2014Q1

REPORT INFORMATION
  Report Type: Spontaneous
  Country: SE (occurrence: SE)
  Receive Date: 20140203
  Receipt Date: 20140203
  Transmission Date: 20141002
  Serious: Yes (Other)
  Sender: FDA-Public Use
  Company Number: CHPA2014SE001918

PATIENT
  Sex: Female

DRUGS (1)
  1. NICOTINELL GUM [Suspect]
     Dosage: UNK

REACTIONS (4)
  - Drug dependence [Unknown]
  - Perivascular dermatitis [Unknown]
  - Pruritus [Unknown]
  - Urticaria [Unknown]
